FAERS Safety Report 16780135 (Version 1)
Quarter: 2019Q3

REPORT INFORMATION
  Report Type: Other
  Country: CA (occurrence: CA)
  Receive Date: 20190906
  Receipt Date: 20190906
  Transmission Date: 20191005
  Serious: Yes (Death, Hospitalization)
  Sender: FDA-Public Use
  Company Number: CA-PFIZER INC-2019381129

PATIENT

DRUGS (3)
  1. HEPARIN SODIUM. [Suspect]
     Active Substance: HEPARIN SODIUM
     Dosage: 5000 IU, 2X/DAY
     Route: 058
  2. FONDAPARINUX [Interacting]
     Active Substance: FONDAPARINUX
     Dosage: 7.5 MG, 1X/DAY
  3. FONDAPARINUX [Interacting]
     Active Substance: FONDAPARINUX
     Dosage: 10 MG, 2X/DAY
     Route: 058

REACTIONS (7)
  - Treatment failure [Fatal]
  - Deep vein thrombosis [Fatal]
  - Drug interaction [Fatal]
  - Hypofibrinogenaemia [Fatal]
  - Haemorrhage intracranial [Fatal]
  - Pulmonary embolism [Fatal]
  - Therapeutic product cross-reactivity [Fatal]
